FAERS Safety Report 10424355 (Version 1)
Quarter: 2014Q3

REPORT INFORMATION
  Report Type: Spontaneous
  Country: US (occurrence: US)
  Receive Date: 20140902
  Receipt Date: 20140902
  Transmission Date: 20150326
  Serious: Yes (Other)
  Sender: FDA-Public Use
  Company Number: US-BRISTOL-MYERS SQUIBB COMPANY-21341938

PATIENT
  Age: 57 Year
  Sex: Female
  Weight: 101.58 kg

DRUGS (4)
  1. PROBIOTICA [Concomitant]
     Active Substance: PROBIOTICS NOS
  2. OMEPRAZOLE. [Concomitant]
     Active Substance: OMEPRAZOLE
  3. VITAMIN D [Concomitant]
     Active Substance: CHOLECALCIFEROL
  4. ORENCIA [Suspect]
     Active Substance: ABATACEPT
     Indication: PSORIATIC ARTHROPATHY
     Route: 058
     Dates: start: 201202

REACTIONS (4)
  - Drug ineffective [Unknown]
  - Amnesia [Unknown]
  - Off label use [Unknown]
  - Gallbladder disorder [Recovered/Resolved]

NARRATIVE: CASE EVENT DATE: 201404
